FAERS Safety Report 8891362 (Version 1)
Quarter: 2012Q4

REPORT INFORMATION
  Report Type: Spontaneous
  Country: US (occurrence: None)
  Receive Date: 20121105
  Receipt Date: 20121105
  Transmission Date: 20130627
  Serious: Yes (Life-Threatening, Hospitalization, Disabling)
  Sender: FDA-Public Use
  Company Number: None

PATIENT
  Age: 84 Year
  Sex: Female
  Weight: 79.3 kg

DRUGS (1)
  1. PRADAXA [Suspect]
     Indication: ATRIAL FIBRILLATION
     Route: 048
     Dates: start: 201208, end: 201209

REACTIONS (6)
  - Haemorrhagic anaemia [None]
  - Gastrointestinal haemorrhage [None]
  - Coagulopathy [None]
  - Renal failure acute [None]
  - Cerebellar haemorrhage [None]
  - Mental status changes [None]
